FAERS Safety Report 24026512 (Version 1)
Quarter: 2024Q2

REPORT INFORMATION
  Report Type: Spontaneous
  Country: US (occurrence: US)
  Receive Date: 20240628
  Receipt Date: 20240628
  Transmission Date: 20240716
  Serious: No
  Sender: FDA-Public Use
  Company Number: US-AUROBINDO-AUR-APL-2024-014131

PATIENT
  Age: 76 Year
  Sex: Male
  Weight: 74.842 kg

DRUGS (2)
  1. AZELASTINE HYDROCHLORIDE [Suspect]
     Active Substance: AZELASTINE HYDROCHLORIDE
     Indication: Nasal discomfort
     Dosage: UNK UNK, TWO TIMES A DAY (ONE SPRAY IN EACH NOSTRIL  TWICE DAILY BUT HE TOOK IT  ONLY IN THE MORNING
     Route: 065
     Dates: start: 20240316
  2. SYNTHROID [Concomitant]
     Active Substance: LEVOTHYROXINE SODIUM
     Indication: Thyroid disorder
     Dosage: UNK
     Route: 065

REACTIONS (8)
  - Nausea [Unknown]
  - Dizziness [Unknown]
  - Headache [Unknown]
  - Taste disorder [Unknown]
  - Gait disturbance [Unknown]
  - Nervousness [Unknown]
  - Sleep disorder [Unknown]
  - Intentional product use issue [Unknown]

NARRATIVE: CASE EVENT DATE: 20240317
